FAERS Safety Report 4272218-2 (Version None)
Quarter: 2004Q1

REPORT INFORMATION
  Report Type: 
  Country: None (occurrence: None)
  Receive Date: 20040115
  Receipt Date: 20010910
  Transmission Date: 20041129
  Serious: Yes (Hospitalization)
  Sender: FDA-Public Use
  Company Number: 10982460

PATIENT
  Age: 56 Year
  Sex: Male

DRUGS (4)
  1. PRAVASTATIN SODIUM [Suspect]
     Dosage: DATE OF MOST RECENT DOSE PRIOR TO EVENT WAS 28-JUL-2001.
     Route: 048
     Dates: start: 20010502
  2. PLACEBO [Suspect]
     Dosage: DATE OF MOST RECENT DOSE PRIOR TO EVENT WAS 28-JUL-2001.
     Route: 048
     Dates: start: 20010516
  3. METOPROLOL TARTRATE [Suspect]
     Route: 048
     Dates: start: 20010518, end: 20010729
  4. ASPIRIN [Concomitant]
     Route: 048
     Dates: start: 20010502

REACTIONS (2)
  - BRADYCARDIA [None]
  - CHEST PAIN [None]
